FAERS Safety Report 5869501-3 (Version None)
Quarter: 2008Q3

REPORT INFORMATION
  Report Type: 
  Country: None (occurrence: None)
  Receive Date: 20080904
  Receipt Date: 20080822
  Transmission Date: 20090109
  Serious: Yes (Other)
  Sender: FDA-Public Use
  Company Number: GB-RANBAXY-2008RR-17594

PATIENT

DRUGS (2)
  1. CEPHALEXIN [Suspect]
     Indication: URINARY TRACT INFECTION
     Dosage: 125 MG, QD
     Route: 048
     Dates: start: 20071205, end: 20080407
  2. CLOPIXOL [Suspect]
     Indication: SCHIZOPHRENIA, PARANOID TYPE
     Dosage: 400 MG, UNK
     Route: 030
     Dates: start: 19990827, end: 20080330

REACTIONS (2)
  - ELECTROCARDIOGRAM QT PROLONGED [None]
  - EXTRASYSTOLES [None]
